FAERS Safety Report 4287127-2 (Version None)
Quarter: 2004Q1

REPORT INFORMATION
  Report Type: 
  Country: None (occurrence: None)
  Receive Date: 20040126
  Receipt Date: 20030829
  Transmission Date: 20041129
  Serious: No
  Sender: FDA-Public Use
  Company Number: USA030945902

PATIENT
  Age: 58 Year
  Sex: Female

DRUGS (12)
  1. FORTEO [Suspect]
     Dates: start: 20030601
  2. SYNTHROID [Concomitant]
  3. PARNATE (TRANYLCPROMINE SULFATE) [Concomitant]
  4. ESKALITH [Concomitant]
  5. DURAGESIC [Concomitant]
  6. OXYCODONE HCL [Concomitant]
  7. VITAMIN B-12 [Concomitant]
  8. PROCTOFOAM (PRAMOCAINE HYDROCHLORIDE) [Concomitant]
  9. FLONASE [Concomitant]
  10. MIRALAX [Concomitant]
  11. FIORICET [Concomitant]
  12. ESTRACE [Concomitant]

REACTIONS (3)
  - BLOOD ALKALINE PHOSPHATASE INCREASED [None]
  - MUSCLE CRAMP [None]
  - OSTEOPENIA [None]
